FAERS Safety Report 9705945 (Version 2)
Quarter: 2013Q4

REPORT INFORMATION
  Report Type: Report from Study
  Country: US (occurrence: US)
  Receive Date: 20131122
  Receipt Date: 20131122
  Transmission Date: 20140711
  Serious: Yes (Hospitalization)
  Sender: FDA-Public Use
  Company Number: US-PFIZER INC-2011042240

PATIENT
  Age: 59 Year
  Sex: Male
  Weight: 102 kg

DRUGS (11)
  1. TOFACITINIB/TOFACITINIB CITRATE [Suspect]
     Indication: RHEUMATOID ARTHRITIS
     Dosage: 10 MG, 2X/DAY
     Route: 048
     Dates: start: 20100301, end: 20110225
  2. NIACIN [Concomitant]
     Indication: HYPERCHOLESTEROLAEMIA
     Dosage: 500 MG, 2X/DAY
     Route: 048
  3. ATENOLOL [Concomitant]
     Indication: HYPERTENSION
     Dosage: 50 MG, 1X/DAY
     Route: 048
     Dates: start: 20000601
  4. ALTACE [Concomitant]
     Indication: HYPERTENSION
     Dosage: 5 MG, 1X/DAY
     Route: 048
     Dates: start: 20000601
  5. DYAZIDE [Concomitant]
     Indication: HYPERTENSION
     Dosage: 37.5/25MG
     Route: 048
     Dates: start: 20000601
  6. ZOCOR [Concomitant]
     Indication: HYPERCHOLESTEROLAEMIA
     Dosage: 20 MG, 1X/DAY
     Route: 048
     Dates: start: 20000601
  7. K-DUR [Concomitant]
     Indication: HYPOKALAEMIA
     Dosage: 40 UG, 1X/DAY
     Route: 048
  8. CATAPRES-TTS [Concomitant]
     Indication: HYPERTENSION
     Dosage: PATCH
     Route: 046
     Dates: start: 20010701
  9. ACETYLSALICYLIC ACID [Concomitant]
     Indication: ROUTINE HEALTH MAINTENANCE
     Dosage: 81 MG, 1X/DAY
     Route: 048
     Dates: start: 20010702
  10. METHOTREXATE [Concomitant]
     Indication: RHEUMATOID ARTHRITIS
     Dosage: 12.5 MG, WEEKLY
     Dates: start: 20061002
  11. PREDNISONE [Concomitant]
     Indication: RHEUMATOID ARTHRITIS
     Dosage: 2 MG, 1X/DAY
     Dates: start: 20060701

REACTIONS (2)
  - Diverticular perforation [Recovered/Resolved with Sequelae]
  - Gastrointestinal infection [Recovered/Resolved with Sequelae]
